FAERS Safety Report 8209273-0 (Version None)
Quarter: 2012Q1

REPORT INFORMATION
  Report Type: 
  Country: None (occurrence: None)
  Receive Date: 20120227
  Receipt Date: 20111222
  Transmission Date: 20120608
  Serious: No
  Sender: FDA-Public Use
  Company Number: 341978

PATIENT
  Sex: Male

DRUGS (1)
  1. VICTOZA [Suspect]
     Indication: WEIGHT CONTROL
     Dosage: UNKNOWN, SUBCUTANEOUS
     Route: 058

REACTIONS (2)
  - DECREASED APPETITE [None]
  - WEIGHT DECREASED [None]
